FAERS Safety Report 4298459-6 (Version None)
Quarter: 2004Q1

REPORT INFORMATION
  Report Type: 
  Country: None (occurrence: None)
  Receive Date: 20040218
  Receipt Date: 20030819
  Transmission Date: 20041129
  Serious: No
  Sender: FDA-Public Use
  Company Number: US-BRISTOL-MYERS SQUIBB COMPANY-12360210

PATIENT
  Age: 26 Year
  Sex: Female

DRUGS (1)
  1. STADOL [Suspect]
     Indication: PANCREATITIS CHRONIC
     Route: 045
     Dates: start: 20010321

REACTIONS (1)
  - DRUG EXPOSURE DURING PREGNANCY [None]
